FAERS Safety Report 15728489 (Version 1)
Quarter: 2018Q4

REPORT INFORMATION
  Report Type: Spontaneous
  Country: DK (occurrence: DK)
  Receive Date: 20181217
  Receipt Date: 20181217
  Transmission Date: 20190205
  Serious: Yes (Other)
  Sender: FDA-Public Use
  Company Number: PHHY2018DK185601

PATIENT
  Age: 67 Year
  Sex: Female

DRUGS (4)
  1. XGEVA [Suspect]
     Active Substance: DENOSUMAB
     Indication: METASTASES TO BONE
     Dosage: 1 DF, 4 WEEK
     Route: 065
     Dates: start: 20151202
  2. ZOMETA [Suspect]
     Active Substance: ZOLEDRONIC ACID
     Indication: METASTASES TO BONE
     Dosage: 1 DF, 3 WEEK
     Route: 065
     Dates: start: 20160219
  3. LETROZOLE. [Concomitant]
     Active Substance: LETROZOLE
     Indication: BREAST CANCER
     Dosage: STYRKE: 2,5 MG
     Route: 048
     Dates: start: 20160721
  4. EPIRUBICIN [Concomitant]
     Active Substance: EPIRUBICIN
     Indication: BREAST CANCER
     Dosage: 1 DF, 3 WEEK
     Route: 065
     Dates: start: 20160219

REACTIONS (3)
  - Osteonecrosis of jaw [Recovered/Resolved]
  - Toothache [Unknown]
  - Exposed bone in jaw [Recovered/Resolved]

NARRATIVE: CASE EVENT DATE: 2017
